FAERS Safety Report 8510324-4 (Version None)
Quarter: 2012Q3

REPORT INFORMATION
  Report Type: 
  Country: None (occurrence: None)
  Receive Date: 20120713
  Receipt Date: 20120711
  Transmission Date: 20120928
  Serious: Yes (Other)
  Sender: FDA-Public Use
  Company Number: GB-ROCHE-1072869

PATIENT
  Sex: Female
  Weight: 57.7 kg

DRUGS (2)
  1. VISMODEGIB [Suspect]
     Dates: start: 20120629
  2. VISMODEGIB [Suspect]
     Indication: BASAL CELL CARCINOMA
     Dosage: LAST DOSE PRIOR TO THE SAE ON 25/MAY/2012
     Route: 048
     Dates: start: 20120426, end: 20120525

REACTIONS (2)
  - ALANINE AMINOTRANSFERASE INCREASED [None]
  - ASPARTATE AMINOTRANSFERASE INCREASED [None]
